FAERS Safety Report 17442304 (Version 1)
Quarter: 2020Q1

REPORT INFORMATION
  Report Type: Spontaneous
  Country: CA (occurrence: CA)
  Receive Date: 20200220
  Receipt Date: 20200220
  Transmission Date: 20200409
  Serious: Yes (Hospitalization)
  Sender: FDA-Public Use
  Company Number: CA-PURDUE PHARMA-CAN-2020-0010603

PATIENT
  Age: 66 Year
  Sex: Male

DRUGS (10)
  1. OXYCODONE HYDROCHLORIDE. [Suspect]
     Active Substance: OXYCODONE HYDROCHLORIDE
     Indication: PRODUCT USED FOR UNKNOWN INDICATION
     Dosage: UNK
     Route: 065
  2. PIRFENIDONE. [Suspect]
     Active Substance: PIRFENIDONE
     Dosage: 534 MG, UNK
     Route: 048
  3. METRONIDAZOLE. [Concomitant]
     Active Substance: METRONIDAZOLE
     Dosage: UNK
  4. PIRFENIDONE. [Suspect]
     Active Substance: PIRFENIDONE
     Dosage: 267 MG, UNK
     Route: 048
  5. ROSUVASTATIN. [Concomitant]
     Active Substance: ROSUVASTATIN
     Dosage: UNK
  6. PIRFENIDONE. [Suspect]
     Active Substance: PIRFENIDONE
     Dosage: 267 MG, Q3D
     Route: 048
  7. MORPHINE SULFATE. [Suspect]
     Active Substance: MORPHINE SULFATE
     Indication: PRODUCT USED FOR UNKNOWN INDICATION
     Dosage: UNK
     Route: 065
  8. CIPROFLOXACIN. [Concomitant]
     Active Substance: CIPROFLOXACIN
     Dosage: UNK
  9. PIRFENIDONE. [Suspect]
     Active Substance: PIRFENIDONE
     Indication: IDIOPATHIC PULMONARY FIBROSIS
     Dosage: UNK
     Route: 065
  10. PIRFENIDONE. [Suspect]
     Active Substance: PIRFENIDONE
     Dosage: 801 MG, UNK
     Route: 048

REACTIONS (13)
  - Depression [Not Recovered/Not Resolved]
  - Chest discomfort [Not Recovered/Not Resolved]
  - Pain [Not Recovered/Not Resolved]
  - Asthenia [Not Recovered/Not Resolved]
  - Nausea [Not Recovered/Not Resolved]
  - Procedural pain [Not Recovered/Not Resolved]
  - Lung disorder [Not Recovered/Not Resolved]
  - Abdominal pain [Not Recovered/Not Resolved]
  - Feeling hot [Not Recovered/Not Resolved]
  - Fatigue [Not Recovered/Not Resolved]
  - Ill-defined disorder [Not Recovered/Not Resolved]
  - Dizziness [Not Recovered/Not Resolved]
  - Hallucination [Not Recovered/Not Resolved]
